FAERS Safety Report 5668742-8 (Version None)
Quarter: 2008Q1

REPORT INFORMATION
  Report Type: 
  Country: None (occurrence: None)
  Receive Date: 20080312
  Receipt Date: 20080312
  Transmission Date: 20080703
  Serious: Yes (Hospitalization)
  Sender: FDA-Public Use
  Company Number: None

PATIENT
  Age: 69 Year
  Sex: Male
  Weight: 78.8 kg

DRUGS (21)
  1. CETUXIMAB [Suspect]
     Indication: OESOPHAGEAL CARCINOMA
     Dosage: 250 MG/M2 IV
     Route: 042
     Dates: start: 20080220
  2. LORDAZEPAM [Concomitant]
  3. CLINDAMYCIN HCL [Concomitant]
  4. WARFARIN SODIUM [Concomitant]
  5. FENTANYL [Concomitant]
  6. OXYCODONE HCL [Concomitant]
  7. VALACYCLOVIR [Concomitant]
  8. ATIVAN [Concomitant]
  9. COMPAZINE [Concomitant]
  10. COUMADIN [Concomitant]
  11. DURAGESIC-100 [Concomitant]
  12. EMEND [Concomitant]
  13. HYDROCORTISONE [Concomitant]
  14. KETOCONAZOLE [Concomitant]
  15. LACTULOSE [Concomitant]
  16. LEVOFLOXACIN [Concomitant]
  17. LOMOTIL [Concomitant]
  18. MINOCYCLINE HCL [Concomitant]
  19. OMEPRAZOLE [Concomitant]
  20. PERCOCET [Concomitant]
  21. VALTRAX [Concomitant]

REACTIONS (4)
  - FATIGUE [None]
  - INADEQUATE ANALGESIA [None]
  - MALIGNANT NEOPLASM PROGRESSION [None]
  - OESOPHAGEAL CANCER METASTATIC [None]
